FAERS Safety Report 7093662-4 (Version None)
Quarter: 2010Q4

REPORT INFORMATION
  Report Type: 
  Country: None (occurrence: None)
  Receive Date: 20101102
  Receipt Date: 20101021
  Transmission Date: 20110411
  Serious: Yes (Other)
  Sender: FDA-Public Use
  Company Number: 2010SP056505

PATIENT
  Age: 17 Year
  Sex: Female

DRUGS (1)
  1. IMPLANON [Suspect]
     Indication: PRODUCT USED FOR UNKNOWN INDICATION
     Dates: start: 20101001

REACTIONS (6)
  - ACNE [None]
  - ANGIOEDEMA [None]
  - APPLICATION SITE HYPERSENSITIVITY [None]
  - HEADACHE [None]
  - PHARYNGEAL OEDEMA [None]
  - SWOLLEN TONGUE [None]
